APPROVED DRUG PRODUCT: BALZIVA-28
Active Ingredient: ETHINYL ESTRADIOL; NORETHINDRONE
Strength: 0.035MG;0.4MG
Dosage Form/Route: TABLET;ORAL-28
Application: A076238 | Product #001 | TE Code: AB
Applicant: BARR LABORATORIES INC
Approved: Apr 22, 2004 | RLD: No | RS: Yes | Type: RX